FAERS Safety Report 16544910 (Version 4)
Quarter: 2021Q1

REPORT INFORMATION
  Report Type: Spontaneous
  Country: US (occurrence: US)
  Receive Date: 20190709
  Receipt Date: 20210119
  Transmission Date: 20210419
  Serious: Yes (Life-Threatening, Hospitalization, Other)
  Sender: FDA-Public Use
  Company Number: US-PFIZER INC-2019288608

PATIENT
  Age: 29 Year
  Sex: Female

DRUGS (7)
  1. METHYLPREDNISOLONE. [Suspect]
     Active Substance: METHYLPREDNISOLONE
     Indication: LUPUS NEPHRITIS
     Dosage: UNK (HIGH DOSE)
  2. PREDNISONE. [Suspect]
     Active Substance: PREDNISONE
     Indication: IMMUNOSUPPRESSANT DRUG THERAPY
     Dosage: 6 MG, DAILY (TAPERING OF THE DOSE)
  3. HYDROXYCHLOROQUINE [Suspect]
     Active Substance: HYDROXYCHLOROQUINE
     Indication: SYSTEMIC LUPUS ERYTHEMATOSUS
     Dosage: UNK
  4. MYCOPHENOLATE MOFETIL. [Suspect]
     Active Substance: MYCOPHENOLATE MOFETIL
     Indication: LUPUS NEPHRITIS
     Dosage: UNK
  5. RITUXIMAB. [Suspect]
     Active Substance: RITUXIMAB
     Indication: LUPUS NEPHRITIS
     Dosage: UNK
  6. METHOTREXATE SODIUM. [Suspect]
     Active Substance: METHOTREXATE SODIUM
     Indication: SYSTEMIC LUPUS ERYTHEMATOSUS
     Dosage: UNK
  7. TRIMETHOPRIM SULFAMETHOXAZOLE [Concomitant]
     Active Substance: SULFAMETHOXAZOLE\TRIMETHOPRIM
     Indication: PROPHYLAXIS
     Dosage: UNK

REACTIONS (2)
  - West Nile viral infection [Recovering/Resolving]
  - Off label use [Unknown]
